FAERS Safety Report 17098189 (Version 1)
Quarter: 2019Q4

REPORT INFORMATION
  Report Type: Spontaneous
  Country: US (occurrence: US)
  Receive Date: 20191105
  Receipt Date: 20191105
  Transmission Date: 20200122
  Serious: Yes (Hospitalization)
  Sender: FDA-Public Use
  Company Number: None

PATIENT
  Age: 64 Year
  Sex: Male

DRUGS (17)
  1. BUDESONIDE. [Concomitant]
     Active Substance: BUDESONIDE
  2. DULOXETINE. [Concomitant]
     Active Substance: DULOXETINE
  3. BENZONATATE. [Concomitant]
     Active Substance: BENZONATATE
  4. LONHALA MAGN SOL [Concomitant]
  5. PRAMIPEXOLE. [Concomitant]
     Active Substance: PRAMIPEXOLE
  6. LORAZEPAM. [Concomitant]
     Active Substance: LORAZEPAM
  7. NYSTATIN. [Concomitant]
     Active Substance: NYSTATIN
  8. HYDORCO/APAP [Concomitant]
  9. MORPHINE [Concomitant]
     Active Substance: MORPHINE
  10. PREDNISONE. [Concomitant]
     Active Substance: PREDNISONE
  11. REPATHA [Suspect]
     Active Substance: EVOLOCUMAB
     Indication: TYPE V HYPERLIPIDAEMIA
     Dosage: ?          OTHER FREQUENCY:EVERY 14 DAYS;?
     Route: 058
     Dates: start: 20181102
  12. TRELEGY AER ELLIPTA [Concomitant]
  13. MUCINEX [Concomitant]
     Active Substance: GUAIFENESIN
  14. CANDESARTAN. [Concomitant]
     Active Substance: CANDESARTAN
  15. TAMSULOSIN [Concomitant]
     Active Substance: TAMSULOSIN
  16. CHANTIX [Concomitant]
     Active Substance: VARENICLINE TARTRATE
  17. ALBUTEROL. [Concomitant]
     Active Substance: ALBUTEROL

REACTIONS (2)
  - Cerebrovascular accident [None]
  - Therapy cessation [None]

NARRATIVE: CASE EVENT DATE: 20191017
